FAERS Safety Report 15626758 (Version 2)
Quarter: 2018Q4

REPORT INFORMATION
  Report Type: Spontaneous
  Country: IT (occurrence: IT)
  Receive Date: 20181116
  Receipt Date: 20181126
  Transmission Date: 20190205
  Serious: Yes (Other)
  Sender: FDA-Public Use
  Company Number: IT-SA-2018SA310418

PATIENT
  Age: 75 Year
  Sex: Male

DRUGS (12)
  1. ONCO CARBIDE [Concomitant]
     Active Substance: HYDROXYUREA
  2. OMEPRAZOLE. [Concomitant]
     Active Substance: OMEPRAZOLE
  3. INSULIN LISPRO [Suspect]
     Active Substance: INSULIN LISPRO
     Indication: DIABETES MELLITUS
     Dosage: 8 IU, QD
     Route: 058
     Dates: start: 20170206
  4. PROPAFENONE. [Concomitant]
     Active Substance: PROPAFENONE
  5. PANCRELIPASE. [Concomitant]
     Active Substance: PANCRELIPASE
  6. ATENOLOL. [Concomitant]
     Active Substance: ATENOLOL
  7. TIOTROPIUM BROMIDE [Concomitant]
     Active Substance: TIOTROPIUM BROMIDE
  8. FOSINOPRIL SODIUM. [Concomitant]
     Active Substance: FOSINOPRIL SODIUM
  9. INDACATEROL [Concomitant]
     Active Substance: INDACATEROL
     Dosage: UNK
  10. PREDNISONE. [Concomitant]
     Active Substance: PREDNISONE
  11. CARDIOASPIRIN [Concomitant]
     Active Substance: ASPIRIN
  12. LANTUS [Suspect]
     Active Substance: INSULIN GLARGINE
     Indication: DIABETES MELLITUS
     Dosage: 4 IU, QD
     Route: 058
     Dates: start: 20170206

REACTIONS (5)
  - Malaise [Recovering/Resolving]
  - Confusional state [Recovering/Resolving]
  - Headache [Recovering/Resolving]
  - Syncope [Recovering/Resolving]
  - Hypoglycaemia [Recovering/Resolving]

NARRATIVE: CASE EVENT DATE: 20180919
